FAERS Safety Report 6077697-6 (Version None)
Quarter: 2009Q1

REPORT INFORMATION
  Report Type: 
  Country: None (occurrence: None)
  Receive Date: 20090213
  Receipt Date: 20090204
  Transmission Date: 20090719
  Serious: Yes (Other)
  Sender: FDA-Public Use
  Company Number: GB-ROCHE-613074

PATIENT
  Sex: Male
  Weight: 138 kg

DRUGS (5)
  1. ORLISTAT [Suspect]
     Indication: OBESITY
     Route: 048
     Dates: start: 20081008
  2. METFORMIN HCL [Concomitant]
     Route: 048
  3. ASPIRIN [Concomitant]
     Route: 048
  4. GLICLAZIDE [Concomitant]
     Dosage: DRUG REPORTED: GLICASIDE
     Route: 048
  5. SIMVASTATIN [Concomitant]
     Route: 048

REACTIONS (1)
  - TRANSIENT ISCHAEMIC ATTACK [None]
